FAERS Safety Report 16905454 (Version 8)
Quarter: 2020Q3

REPORT INFORMATION
  Report Type: Spontaneous
  Country: US (occurrence: US)
  Receive Date: 20191010
  Receipt Date: 20200824
  Transmission Date: 20201102
  Serious: No
  Sender: FDA-Public Use
  Company Number: US-BRISTOL-MYERS SQUIBB COMPANY-BMS-2019-098045

PATIENT
  Age: 49 Year
  Sex: Female

DRUGS (1)
  1. ORENCIA [Suspect]
     Active Substance: ABATACEPT
     Indication: RHEUMATOID ARTHRITIS
     Dosage: 125 MILLIGRAM, QWK
     Route: 058
     Dates: start: 20190813

REACTIONS (5)
  - Dizziness [Unknown]
  - Blood pressure decreased [Unknown]
  - Herpes virus infection [Unknown]
  - Vertigo [Unknown]
  - Rash pruritic [Unknown]

NARRATIVE: CASE EVENT DATE: 201909
